FAERS Safety Report 5087136-X (Version None)
Quarter: 2006Q3

REPORT INFORMATION
  Report Type: 
  Country: None (occurrence: None)
  Receive Date: 20060821
  Receipt Date: 20060810
  Transmission Date: 20061208
  Serious: Yes (Other)
  Sender: FDA-Public Use
  Company Number: NL-2006-022873

PATIENT
  Age: 34 Year
  Sex: Female
  Weight: 43 kg

DRUGS (13)
  1. MAGNEVIST [Suspect]
     Indication: ANGIOGRAM
     Dosage: 10 ML, 8X 1 DOSE, INTRAVENOUS
     Route: 042
     Dates: start: 20040401, end: 20060701
  2. VENOFER [Concomitant]
  3. ETALPHA (ALFACALCIDOL) [Concomitant]
  4. RENAGEL [Concomitant]
  5. BRUFEN [Concomitant]
  6. DURAGESIC-100 [Concomitant]
  7. VALIUM [Concomitant]
  8. IMODIUM [Concomitant]
  9. PANTOZOL (PANTOPRAZOLE SODIUM) [Concomitant]
  10. PLAVIX [Concomitant]
  11. SORBISTERIL (CALCIUM POLYSTYRENE SULFONATE) [Concomitant]
  12. ARANESP [Concomitant]
  13. FRAXIPARIN (HEPARIN-FRACTION, CALCIUM SALT) [Concomitant]

REACTIONS (1)
  - NEPHROGENIC FIBROSING DERMOPATHY [None]
